FAERS Safety Report 8531858-2 (Version None)
Quarter: 2012Q3

REPORT INFORMATION
  Report Type: 
  Country: None (occurrence: None)
  Receive Date: 20120716
  Receipt Date: 20120716
  Transmission Date: 20120928
  Serious: Yes (Other)
  Sender: FDA-Public Use
  Company Number: None

PATIENT
  Age: 44 Year
  Sex: Female
  Weight: 40.8237 kg

DRUGS (2)
  1. QUETIAPINE [Suspect]
     Indication: DERMATITIS ALLERGIC
     Dosage: 10 MG, PO, TID
     Route: 048
     Dates: start: 20120626
  2. DIAZEPAM [Concomitant]

REACTIONS (3)
  - RASH ERYTHEMATOUS [None]
  - PRURITUS [None]
  - PRODUCT SUBSTITUTION ISSUE [None]
